FAERS Safety Report 8026303-X (Version None)
Quarter: 2012Q1

REPORT INFORMATION
  Report Type: 
  Country: None (occurrence: None)
  Receive Date: 20120105
  Receipt Date: 20111214
  Transmission Date: 20120608
  Serious: No
  Sender: FDA-Public Use
  Company Number: US-ABBOTT-11P-163-0883577-00

PATIENT
  Sex: Female
  Weight: 54.48 kg

DRUGS (2)
  1. SYNTHROID [Suspect]
     Indication: HYPOTHYROIDISM
     Dates: start: 20110914, end: 20111209
  2. SEASONIQUE [Concomitant]
     Indication: CONTRACEPTION

REACTIONS (4)
  - INSOMNIA [None]
  - WEIGHT DECREASED [None]
  - TREMOR [None]
  - PALPITATIONS [None]
